FAERS Safety Report 26098107 (Version 1)
Quarter: 2025Q4

REPORT INFORMATION
  Report Type: Report from Study
  Country: US (occurrence: US)
  Receive Date: 20251127
  Receipt Date: 20251127
  Transmission Date: 20260118
  Serious: Yes (Hospitalization)
  Sender: SANDOZ
  Company Number: US-INCYTE CORPORATION-2025IN009238

PATIENT
  Age: 59 Year
  Sex: Female
  Weight: 66.6 kg

DRUGS (2)
  1. METHOTREXATE [Suspect]
     Active Substance: METHOTREXATE
     Indication: Myelodysplastic syndrome
     Dosage: 7.6 MG, QD
     Route: 042
     Dates: start: 20250814
  2. TACROLIMUS [Suspect]
     Active Substance: TACROLIMUS
     Indication: Myelodysplastic syndrome
     Dosage: 2.5 MG, QD
     Route: 042
     Dates: start: 20250810

REACTIONS (1)
  - Febrile neutropenia [Recovered/Resolved]

NARRATIVE: CASE EVENT DATE: 20250821
